FAERS Safety Report 24417100 (Version 1)
Quarter: 2024Q4

REPORT INFORMATION
  Report Type: Spontaneous
  Country: US (occurrence: US)
  Receive Date: 20241009
  Receipt Date: 20241009
  Transmission Date: 20250114
  Serious: No
  Sender: CB FLEET
  Company Number: US-PRESTIGE-202406-US-002022

PATIENT
  Sex: Female

DRUGS (1)
  1. MONISTAT 7 [Suspect]
     Active Substance: MICONAZOLE NITRATE
     Indication: Product used for unknown indication
     Dosage: I USED IT FOR 4 DAYS
     Route: 067

REACTIONS (1)
  - Abdominal distension [Not Recovered/Not Resolved]
